FAERS Safety Report 24902141 (Version 2)
Quarter: 2025Q1

REPORT INFORMATION
  Report Type: Spontaneous
  Country: US (occurrence: US)
  Receive Date: 20250129
  Receipt Date: 20250205
  Transmission Date: 20250409
  Serious: No
  Sender: SANOFI AVENTIS
  Company Number: US-SANOFI-02389231

PATIENT
  Age: 70 Year
  Sex: Male

DRUGS (1)
  1. ADMELOG [Suspect]
     Active Substance: INSULIN LISPRO
     Indication: Type 2 diabetes mellitus
     Dosage: 12 IU, TID (BEFORE EACH MEAL)
     Dates: start: 2024

REACTIONS (2)
  - Blood glucose increased [Unknown]
  - Drug ineffective [Unknown]
